FAERS Safety Report 4821511-0 (Version None)
Quarter: 2005Q4

REPORT INFORMATION
  Report Type: 
  Country: None (occurrence: None)
  Receive Date: 20051107
  Receipt Date: 20051102
  Transmission Date: 20060501
  Serious: Yes (Death)
  Sender: FDA-Public Use
  Company Number: ES-GLAXOSMITHKLINE-B0399457A

PATIENT
  Age: 23 Year
  Sex: Female

DRUGS (1)
  1. AUGMENTIN '125' [Suspect]
     Indication: PROPHYLAXIS
     Dosage: 2G PER DAY
     Route: 042
     Dates: start: 20041105, end: 20041105

REACTIONS (4)
  - ANAPHYLACTIC SHOCK [None]
  - CAESAREAN SECTION [None]
  - CARDIOPULMONARY FAILURE [None]
  - DRUG EXPOSURE DURING PREGNANCY [None]
